FAERS Safety Report 7357453-9 (Version None)
Quarter: 2011Q1

REPORT INFORMATION
  Report Type: 
  Country: None (occurrence: None)
  Receive Date: 20110317
  Receipt Date: 20110303
  Transmission Date: 20110831
  Serious: Yes (Hospitalization)
  Sender: FDA-Public Use
  Company Number: PHFR2011GB01309

PATIENT
  Sex: Female

DRUGS (1)
  1. CLOZARIL [Suspect]
     Indication: SCHIZOPHRENIA
     Dosage: UNK
     Route: 048
     Dates: start: 20031004

REACTIONS (5)
  - GRAND MAL CONVULSION [None]
  - UPPER LIMB FRACTURE [None]
  - COMA SCALE ABNORMAL [None]
  - PNEUMONIA [None]
  - COMA [None]
